FAERS Safety Report 16593000 (Version 1)
Quarter: 2019Q3

REPORT INFORMATION
  Report Type: Report from Study
  Country: CN (occurrence: CN)
  Receive Date: 20190718
  Receipt Date: 20190718
  Transmission Date: 20191004
  Serious: Yes (Hospitalization)
  Sender: FDA-Public Use
  Company Number: CN-CELGENEUS-CHN-20190106535

PATIENT
  Age: 62 Year
  Sex: Male
  Weight: 53 kg

DRUGS (6)
  1. AZACITIDINE INJECTABLE [Suspect]
     Active Substance: AZACITIDINE
     Route: 058
     Dates: start: 20190103, end: 20190109
  2. THALIDOMIDE TABLETS [Concomitant]
     Indication: LEUKOPENIA
     Dosage: 25 MILLIGRAM
     Route: 048
     Dates: start: 20190123, end: 20190125
  3. AZACITIDINE INJECTABLE [Suspect]
     Active Substance: AZACITIDINE
     Indication: ACUTE MYELOID LEUKAEMIA
     Route: 058
     Dates: start: 20181206, end: 20181212
  4. AMLODIPINE BESYLATE. [Concomitant]
     Active Substance: AMLODIPINE BESYLATE
     Indication: HYPERTENSION
     Dosage: 5 MILLIGRAM
     Route: 048
     Dates: start: 20181220
  5. RHG-CSF INJECTION [Concomitant]
     Indication: LEUKOPENIA
     Dosage: .3 MILLIGRAM
     Route: 058
     Dates: start: 20190121, end: 20190124
  6. ASPIRIN ENTERIC COATED TABLETS [Concomitant]
     Indication: HYPERTENSIVE HEART DISEASE
     Dosage: .1 GRAM
     Route: 048
     Dates: start: 20180817

REACTIONS (1)
  - Furuncle [Recovered/Resolved]

NARRATIVE: CASE EVENT DATE: 20190113
